FAERS Safety Report 20471460 (Version 1)
Quarter: 2022Q1

REPORT INFORMATION
  Report Type: Spontaneous
  Country: US (occurrence: US)
  Receive Date: 20220214
  Receipt Date: 20220214
  Transmission Date: 20220423
  Serious: No
  Sender: FDA-Public Use
  Company Number: US-SA-SAC20220207001449

PATIENT
  Age: 48 Year
  Sex: Male

DRUGS (3)
  1. DUPIXENT [Suspect]
     Active Substance: DUPILUMAB
     Indication: Dermatitis atopic
     Dosage: 300 MG, QOW
     Route: 058
     Dates: start: 20211210
  2. CLOBETASOL [Concomitant]
     Active Substance: CLOBETASOL
  3. PROTOPIC [Concomitant]
     Active Substance: TACROLIMUS

REACTIONS (3)
  - Eye irritation [Unknown]
  - Ocular hyperaemia [Unknown]
  - Dermatitis atopic [Unknown]
